FAERS Safety Report 7519407-9 (Version None)
Quarter: 2011Q2

REPORT INFORMATION
  Report Type: 
  Country: None (occurrence: None)
  Receive Date: 20110602
  Receipt Date: 20110527
  Transmission Date: 20111010
  Serious: Yes (Hospitalization)
  Sender: FDA-Public Use
  Company Number: PHHY2011JP46218

PATIENT
  Age: 81 Year
  Sex: Female

DRUGS (2)
  1. WARFARIN SODIUM [Suspect]
  2. HEPARIN [Suspect]
     Dosage: UNK

REACTIONS (9)
  - VASCULAR PSEUDOANEURYSM [None]
  - VASCULAR PSEUDOANEURYSM RUPTURED [None]
  - CHEST PAIN [None]
  - AORTIC DISSECTION [None]
  - SHOCK [None]
  - GASTROINTESTINAL HAEMORRHAGE [None]
  - BACK PAIN [None]
  - ANAEMIA [None]
  - BLOOD PRESSURE DECREASED [None]
